FAERS Safety Report 18234049 (Version 1)
Quarter: 2020Q3

REPORT INFORMATION
  Report Type: Spontaneous
  Country: US (occurrence: US)
  Receive Date: 20200904
  Receipt Date: 20200904
  Transmission Date: 20201103
  Serious: Yes (Hospitalization, Other)
  Sender: FDA-Public Use
  Company Number: US-HIKMA PHARMACEUTICALS USA INC.-US-H14001-20-04124

PATIENT
  Age: 31 Year
  Sex: Male

DRUGS (1)
  1. FENTANYL. [Suspect]
     Active Substance: FENTANYL
     Indication: PRODUCT USED FOR UNKNOWN INDICATION
     Route: 065

REACTIONS (6)
  - Fine motor skill dysfunction [Unknown]
  - Road traffic accident [Unknown]
  - Unresponsive to stimuli [Unknown]
  - Miosis [Unknown]
  - Confusional state [Unknown]
  - Drug abuse [Unknown]
